FAERS Safety Report 14947015 (Version 1)
Quarter: 2018Q2

REPORT INFORMATION
  Report Type: Spontaneous
  Country: DE (occurrence: DE)
  Receive Date: 20180529
  Receipt Date: 20180529
  Transmission Date: 20180711
  Serious: Yes (Hospitalization)
  Sender: FDA-Public Use
  Company Number: DE-JNJFOC-20180534287

PATIENT
  Age: 88 Year
  Sex: Female

DRUGS (7)
  1. XARELTO [Suspect]
     Active Substance: RIVAROXABAN
     Indication: PRODUCT USED FOR UNKNOWN INDICATION
     Route: 048
  2. PANTOPRAZOLE [Concomitant]
     Active Substance: PANTOPRAZOLE
     Route: 065
  3. MELPERON [Concomitant]
     Active Substance: MELPERONE
     Route: 065
  4. LEVOTHYROXIN [Concomitant]
     Active Substance: LEVOTHYROXINE
     Route: 065
  5. METAMIZOLE [Concomitant]
     Active Substance: METAMIZOLE
     Route: 065
  6. RAMIPRIL. [Concomitant]
     Active Substance: RAMIPRIL
     Route: 065
  7. TORASEMID [Concomitant]
     Active Substance: TORSEMIDE
     Route: 065

REACTIONS (2)
  - Anaemia [Unknown]
  - Fatigue [Unknown]
